FAERS Safety Report 18745520 (Version 2)
Quarter: 2021Q1

REPORT INFORMATION
  Report Type: Spontaneous
  Country: US (occurrence: US)
  Receive Date: 20210115
  Receipt Date: 20210121
  Transmission Date: 20210419
  Serious: Yes (Hospitalization)
  Sender: FDA-Public Use
  Company Number: US-009507513-2101USA004578

PATIENT
  Age: 21 Year
  Sex: Female

DRUGS (8)
  1. NAPROXEN. [Concomitant]
     Active Substance: NAPROXEN
     Dosage: OVERDOSING OF 2 OF HER 220 MG TABLETS
  2. REMERON [Suspect]
     Active Substance: MIRTAZAPINE
     Dosage: OVERDOSING 7 OF HER 15 MG MIRTAZAPINE TABLETS
     Route: 048
  3. REMERON [Suspect]
     Active Substance: MIRTAZAPINE
     Dosage: UNK, OVERDOSE
     Route: 048
  4. PALIPERIDONE. [Suspect]
     Active Substance: PALIPERIDONE
     Dosage: UNK, OVERDOSE
     Route: 048
  5. TOPIRAMATE. [Concomitant]
     Active Substance: TOPIRAMATE
     Dosage: OVERDOISNG OF 7 OF HER 50 MG TABLETS
  6. SUMATRIPTAN. [Concomitant]
     Active Substance: SUMATRIPTAN
     Dosage: OVERDOSING OF 2 OF HER 100 MILLIGRAM
  7. CARIPRAZINE [Concomitant]
     Active Substance: CARIPRAZINE
     Dosage: OVERDOSING 20 OF HER 3 MG TABLETS
  8. PALIPERIDONE. [Suspect]
     Active Substance: PALIPERIDONE
     Dosage: OVERDOSING 7 OF HER 6 MG EXTENDED?RELEASE PALIPERIDONE TABLETS
     Route: 048

REACTIONS (3)
  - Atrioventricular block first degree [Recovered/Resolved]
  - Intentional overdose [Unknown]
  - Sinus tachycardia [Recovered/Resolved]
